FAERS Safety Report 11625750 (Version 4)
Quarter: 2015Q4

REPORT INFORMATION
  Report Type: Spontaneous
  Country: ES (occurrence: ES)
  Receive Date: 20151013
  Receipt Date: 20151202
  Transmission Date: 20160304
  Serious: Yes (Death, Hospitalization, Other)
  Sender: FDA-Public Use
  Company Number: ES-GILEAD-2015-0175498

PATIENT
  Age: 82 Year
  Sex: Female
  Weight: 72 kg

DRUGS (6)
  1. HARVONI [Suspect]
     Active Substance: LEDIPASVIR\SOFOSBUVIR
     Indication: HEPATITIS C
     Dosage: 90/400
     Route: 048
     Dates: start: 20150907, end: 20150922
  2. ALDACTONE [Concomitant]
     Active Substance: SPIRONOLACTONE
     Route: 065
  3. EBASTEL [Concomitant]
     Active Substance: EBASTINE
     Route: 065
  4. SEGURIL [Concomitant]
     Active Substance: FUROSEMIDE
     Route: 065
  5. KONAKION [Concomitant]
     Active Substance: PHYTONADIONE
     Route: 065
  6. RANITIDINE HYDROCHLORIDE. [Concomitant]
     Active Substance: RANITIDINE HYDROCHLORIDE
     Route: 065

REACTIONS (3)
  - Hepatic encephalopathy [Unknown]
  - Urosepsis [Fatal]
  - Acute hepatic failure [Fatal]

NARRATIVE: CASE EVENT DATE: 201509
